FAERS Safety Report 7552228-X (Version None)
Quarter: 2011Q2

REPORT INFORMATION
  Report Type: 
  Country: None (occurrence: None)
  Receive Date: 20110616
  Receipt Date: 20041222
  Transmission Date: 20111010
  Serious: Yes (Hospitalization)
  Sender: FDA-Public Use
  Company Number: PHHO2004JP18443

PATIENT
  Sex: Male

DRUGS (3)
  1. DIOVAN [Suspect]
     Indication: HYPERTENSION
     Dosage: 80 MG, QD
     Route: 048
     Dates: start: 20030728, end: 20040608
  2. NORVASC [Concomitant]
     Indication: HYPERTENSION
     Dates: start: 20031027
  3. TENORMIN [Concomitant]
     Indication: ANGINA PECTORIS
     Dates: start: 20010312

REACTIONS (3)
  - ACUTE MYOCARDIAL INFARCTION [None]
  - ANGINA PECTORIS [None]
  - ELECTROCARDIOGRAM ST-T CHANGE [None]
